FAERS Safety Report 14034764 (Version 1)
Quarter: 2017Q4

REPORT INFORMATION
  Report Type: Spontaneous
  Country: US (occurrence: US)
  Receive Date: 20171003
  Receipt Date: 20171003
  Transmission Date: 20180321
  Serious: Yes (Hospitalization)
  Sender: FDA-Public Use
  Company Number: US-PROCTER_AND_GAMBLE-GS17106544

PATIENT
  Sex: Male

DRUGS (1)
  1. CREST PRO-HEALTH JR. ANTICAVITY BREEZY MINT [Suspect]
     Active Substance: SODIUM FLUORIDE
     Route: 002

REACTIONS (2)
  - Pneumothorax [Not Recovered/Not Resolved]
  - Unevaluable event [Not Recovered/Not Resolved]
